FAERS Safety Report 7450538-8 (Version None)
Quarter: 2011Q2

REPORT INFORMATION
  Report Type: 
  Country: None (occurrence: None)
  Receive Date: 20110502
  Receipt Date: 20110427
  Transmission Date: 20111010
  Serious: Yes (Life-Threatening)
  Sender: FDA-Public Use
  Company Number: PHHY2011JP14882

PATIENT
  Sex: Male
  Weight: 52 kg

DRUGS (3)
  1. AMLODIN [Suspect]
     Dosage: 5 MG, DAILY
     Route: 048
     Dates: start: 20090418
  2. ASPIRIN [Suspect]
     Dosage: 100 MG, DAILY
     Route: 048
     Dates: start: 20090418, end: 20090612
  3. CO-DIOVAN [Suspect]
     Indication: HYPERTENSION
     Dosage: 1 DF, UNK
     Route: 048
     Dates: start: 20090501, end: 20090612

REACTIONS (6)
  - INFARCTION [None]
  - HYPOTENSION [None]
  - CEREBRAL THROMBOSIS [None]
  - DYSLALIA [None]
  - ATAXIA [None]
  - DYSPHAGIA [None]
